FAERS Safety Report 9837059 (Version 2)
Quarter: 2014Q4

REPORT INFORMATION
  Report Type: Report from Study
  Country: MX (occurrence: MX)
  Receive Date: 20140123
  Receipt Date: 20141118
  Transmission Date: 20150529
  Serious: Yes (Life-Threatening, Other)
  Sender: FDA-Public Use
  Company Number: PHHY2014MX004929

PATIENT
  Age: 45 Year
  Sex: Female

DRUGS (6)
  1. FORADIL [Suspect]
     Active Substance: FORMOTEROL FUMARATE
     Indication: ASTHMA
     Dosage: 1 DF, PRN
     Route: 055
     Dates: start: 201201
  2. IMMUNOCAL [Concomitant]
     Indication: IMMUNE SYSTEM DISORDER
     Dosage: UNK
     Route: 065
  3. AMLODIPINE [Suspect]
     Active Substance: AMLODIPINE BESYLATE
     Indication: HYPERTENSION
     Dosage: 1 DF, DAILY
     Route: 048
     Dates: start: 201305, end: 201311
  4. MIFLONIDE [Suspect]
     Active Substance: BUDESONIDE
     Indication: ASTHMA
     Dosage: 1 DF, Q12H
     Route: 055
     Dates: start: 201201
  5. MIFLONIDE [Suspect]
     Active Substance: BUDESONIDE
     Dosage: 1 DF, QD
     Route: 055
  6. PREDNISONE. [Concomitant]
     Active Substance: PREDNISONE
     Indication: BRONCHITIS
     Dosage: 1 DF, PRN
     Route: 065

REACTIONS (7)
  - Arrhythmia [Recovered/Resolved]
  - Vasculitis [Recovered/Resolved]
  - Blindness transient [Recovered/Resolved]
  - Inflammation [Recovered/Resolved]
  - Feeling abnormal [Recovered/Resolved]
  - Hypertension [Recovering/Resolving]
  - Stress [Recovered/Resolved]

NARRATIVE: CASE EVENT DATE: 2013
